FAERS Safety Report 8076954-1 (Version None)
Quarter: 2012Q1

REPORT INFORMATION
  Report Type: 
  Country: None (occurrence: None)
  Receive Date: 20120127
  Receipt Date: 20120119
  Transmission Date: 20120608
  Serious: Yes (Other)
  Sender: FDA-Public Use
  Company Number: US-PURDUE-USA-2010-0049259

PATIENT
  Sex: Male
  Weight: 92.971 kg

DRUGS (3)
  1. OXYCONTIN [Suspect]
     Indication: BACK PAIN
     Dosage: 80 MG, QID
     Route: 048
     Dates: start: 20100901
  2. OXYCONTIN [Suspect]
     Indication: NEURALGIA
     Dosage: 160 MG, HS
     Route: 048
     Dates: start: 20100901
  3. OXYCONTIN [Suspect]
     Indication: SPINAL LAMINECTOMY

REACTIONS (12)
  - DRUG EFFECT DECREASED [None]
  - UNEVALUABLE EVENT [None]
  - PAIN [None]
  - DIARRHOEA [None]
  - BENIGN NEOPLASM [None]
  - ABDOMINAL PAIN UPPER [None]
  - ERUCTATION [None]
  - PRODUCT SOLUBILITY ABNORMAL [None]
  - BLOOD PRESSURE INCREASED [None]
  - DRUG EFFECT DELAYED [None]
  - VOMITING [None]
  - LIVER DISORDER [None]
